FAERS Safety Report 8967739 (Version 2)
Quarter: 2013Q2

REPORT INFORMATION
  Report Type: Spontaneous
  Country: FR (occurrence: None)
  Receive Date: 20121210
  Receipt Date: 20130516
  Transmission Date: 20140414
  Serious: Yes (Hospitalization)
  Sender: FDA-Public Use
  Company Number: FK201203720

PATIENT
  Sex: Female

DRUGS (21)
  1. PROPOFOL [Suspect]
     Indication: INDUCTION OF ANAESTHESIA
     Dosage: INTRAVENOUS (NOT OTHERWISE SPECIFIED)
     Route: 042
     Dates: start: 20120310, end: 20120310
  2. CEFTRIAXON (MANUFACTURER UNKNOWN) (CEFTRIAXON-DINATRIUM) (CEFTRIAXON-DINATRIUM) [Suspect]
     Indication: PRODUCT USED FOR UNKNOWN INDICATION
     Dates: start: 20120304, end: 20120316
  3. KABIVEN [Suspect]
     Indication: PARENTERAL NUTRITION
     Dosage: INTRAVENOUS (NOT OTHERWISE SPECIFIED)
     Route: 042
     Dates: start: 20120304, end: 20120316
  4. MIDAZOLAM [Suspect]
     Indication: PRODUCT USED FOR UNKNOWN INDICATION
  5. SUFENTANIL [Suspect]
     Indication: PRODUCT USED FOR UNKNOWN INDICATION
  6. ATRACURIUM [Suspect]
     Indication: PRODUCT USED FOR UNKNOWN INDICATION
  7. TAZOCILLINE [Suspect]
     Indication: PRODUCT USED FOR UNKNOWN INDICATION
  8. CELESTINE [Suspect]
     Indication: PRODUCT USED FOR UNKNOWN INDICATION
  9. KETAMINE [Suspect]
     Indication: PRODUCT USED FOR UNKNOWN INDICATION
  10. PERFALGAN (PARACETAMOL) (PARACETAMOL) [Suspect]
     Indication: PRODUCT USED FOR UNKNOWN INDICATION
  11. TRACTOCILE [Suspect]
     Indication: PRODUCT USED FOR UNKNOWN INDICATION
  12. ZOPHREN (ONDANSETRON) [Suspect]
     Indication: PRODUCT USED FOR UNKNOWN INDICATION
  13. INEXIUM [Suspect]
     Indication: PRODUCT USED FOR UNKNOWN INDICATION
  14. LOVENOX [Suspect]
     Indication: PRODUCT USED FOR UNKNOWN INDICATION
  15. OLICLINOMEL [Suspect]
     Indication: PRODUCT USED FOR UNKNOWN INDICATION
  16. TAGAMET [Suspect]
     Indication: PRODUCT USED FOR UNKNOWN INDICATION
  17. EMLA [Suspect]
     Indication: PRODUCT USED FOR UNKNOWN INDICATION
  18. AMOXICILLIN [Suspect]
     Indication: PRODUCT USED FOR UNKNOWN INDICATION
  19. FUMAFER [Suspect]
     Indication: PRODUCT USED FOR UNKNOWN INDICATION
  20. TAMIFLU [Suspect]
     Indication: PRODUCT USED FOR UNKNOWN INDICATION
  21. ROXITHROMYCIN [Suspect]
     Indication: PRODUCT USED FOR UNKNOWN INDICATION

REACTIONS (4)
  - Maternal drugs affecting foetus [None]
  - Foetal growth restriction [None]
  - Cerebral haemorrhage [None]
  - Caesarean section [None]
